FAERS Safety Report 17299229 (Version 2)
Quarter: 2021Q2

REPORT INFORMATION
  Report Type: Spontaneous
  Country: US (occurrence: US)
  Receive Date: 20200122
  Receipt Date: 20210528
  Transmission Date: 20210716
  Serious: Yes (Hospitalization, Disabling, Other)
  Sender: FDA-Public Use
  Company Number: US-MYLANLABS-2020M1006390

PATIENT
  Age: 45 Year
  Sex: Female

DRUGS (1)
  1. EVEROLIMUS. [Suspect]
     Active Substance: EVEROLIMUS
     Indication: HEPATOMEGALY
     Dosage: UNK
     Route: 065
     Dates: start: 2016

REACTIONS (6)
  - Internal haemorrhage [Recovered/Resolved]
  - Acquired dysfibrinogenaemia [Not Recovered/Not Resolved]
  - Lower gastrointestinal haemorrhage [Recovered/Resolved]
  - Unmasking of previously unidentified disease [Not Recovered/Not Resolved]
  - Peroneal nerve palsy [Not Recovered/Not Resolved]
  - Pelvic haematoma [Recovered/Resolved]
